FAERS Safety Report 4575126-2 (Version None)
Quarter: 2005Q1

REPORT INFORMATION
  Report Type: 
  Country: None (occurrence: None)
  Receive Date: 20050208
  Receipt Date: 20050106
  Transmission Date: 20050727
  Serious: Yes (Hospitalization, Other)
  Sender: FDA-Public Use
  Company Number: PHNR2005AU00445

PATIENT
  Sex: Female

DRUGS (2)
  1. HRT [Suspect]
  2. FAMVIR [Suspect]
     Indication: HERPES SIMPLEX
     Dosage: 250 MG, TID
     Route: 048
     Dates: start: 20041009

REACTIONS (4)
  - DIARRHOEA [None]
  - NAUSEA [None]
  - PALPITATIONS [None]
  - THROMBOSIS [None]
